FAERS Safety Report 10193225 (Version 1)
Quarter: 2014Q2

REPORT INFORMATION
  Report Type: Spontaneous
  Country: US (occurrence: US)
  Receive Date: 20140524
  Receipt Date: 20140524
  Transmission Date: 20141212
  Serious: No
  Sender: FDA-Public Use
  Company Number: US-SA-2013SA110972

PATIENT
  Sex: 0

DRUGS (1)
  1. LANTUS [Suspect]
     Route: 051

REACTIONS (5)
  - Migraine [Recovering/Resolving]
  - Blood glucose decreased [Unknown]
  - Tremor [Unknown]
  - Hyperhidrosis [Unknown]
  - Nausea [Unknown]
